FAERS Safety Report 5232632-5 (Version None)
Quarter: 2007Q1

REPORT INFORMATION
  Report Type: 
  Country: None (occurrence: None)
  Receive Date: 20070207
  Receipt Date: 20070207
  Transmission Date: 20070707
  Serious: Yes (Hospitalization)
  Sender: FDA-Public Use
  Company Number: None

PATIENT
  Age: 54 Year
  Sex: Male
  Weight: 87.5442 kg

DRUGS (14)
  1. SIMVASTATIN [Suspect]
     Indication: ACUTE CORONARY SYNDROME
     Dosage: 80 MG AT BEDTIME PO
     Route: 048
     Dates: start: 20040313, end: 20061108
  2. SIMVASTATIN [Suspect]
     Indication: HYPERLIPIDAEMIA
     Dosage: 80 MG AT BEDTIME PO
     Route: 048
     Dates: start: 20040313, end: 20061108
  3. SIMVASTATIN [Suspect]
     Indication: STENT PLACEMENT
     Dosage: 80 MG AT BEDTIME PO
     Route: 048
     Dates: start: 20040313, end: 20061108
  4. PROPRANOLOL [Concomitant]
  5. LOSARTAN POTASSIUM [Concomitant]
  6. ASPIRIN [Concomitant]
  7. DESONIDE [Concomitant]
  8. FLUNISOLIDE [Concomitant]
  9. HYDROCHLOROTHIAZIDE [Concomitant]
  10. KETOCONAZOLE [Concomitant]
  11. LORATADINE [Concomitant]
  12. NITROGLYCERIN [Concomitant]
  13. OMEPRAZOLE [Concomitant]
  14. SODIUM CHLORIDE [Concomitant]

REACTIONS (5)
  - ACTIVITIES OF DAILY LIVING IMPAIRED [None]
  - FALL [None]
  - PROTEINURIA [None]
  - RENAL TUBULAR NECROSIS [None]
  - RHABDOMYOLYSIS [None]
